FAERS Safety Report 26154383 (Version 1)
Quarter: 2025Q4

REPORT INFORMATION
  Report Type: Spontaneous
  Country: JP (occurrence: JP)
  Receive Date: 20251215
  Receipt Date: 20251215
  Transmission Date: 20260117
  Serious: Yes (Death)
  Sender: SANDOZ
  Company Number: JP-asahikaseip-2025-AER-07443

PATIENT
  Age: 95 Year
  Sex: Female

DRUGS (1)
  1. RECLAST [Suspect]
     Active Substance: ZOLEDRONIC ACID
     Indication: Product used for unknown indication
     Dosage: 5 MG, 1 YEAR
     Route: 041
     Dates: start: 20241119

REACTIONS (1)
  - Death [Fatal]
